FAERS Safety Report 21552015 (Version 2)
Quarter: 2025Q2

REPORT INFORMATION
  Report Type: Spontaneous
  Country: US (occurrence: US)
  Receive Date: 20221104
  Receipt Date: 20250618
  Transmission Date: 20250717
  Serious: Yes (Hospitalization, Other)
  Sender: AUROBINDO
  Company Number: US-MLMSERVICE-20221018-3868141-1

PATIENT
  Age: 68 Year
  Sex: Male

DRUGS (3)
  1. BUPIVACAINE HYDROCHLORIDE [Suspect]
     Active Substance: BUPIVACAINE HYDROCHLORIDE
     Indication: Pain management
     Route: 037
  2. CLONIDINE [Concomitant]
     Active Substance: CLONIDINE
     Indication: Pain management
     Route: 037
  3. MORPHINE [Concomitant]
     Active Substance: MORPHINE
     Indication: Pain management
     Route: 037

REACTIONS (7)
  - Hypokalaemia [Recovered/Resolved]
  - Bradycardia [Recovered/Resolved]
  - Hypotension [Recovered/Resolved]
  - Paralysis [Recovered/Resolved]
  - Neurotoxicity [Unknown]
  - Cardiotoxicity [Unknown]
  - Medication error [Unknown]
